FAERS Safety Report 16810285 (Version 2)
Quarter: 2019Q3

REPORT INFORMATION
  Report Type: Report from Study
  Country: JP (occurrence: JP)
  Receive Date: 20190916
  Receipt Date: 20190924
  Transmission Date: 20191005
  Serious: Yes (Life-Threatening, Hospitalization)
  Sender: FDA-Public Use
  Company Number: JP-RECRO GAINESVILLE LLC-REPH-2019-000181

PATIENT
  Age: 84 Year
  Sex: Male
  Weight: 60 kg

DRUGS (2)
  1. PROSCILLARIDIN [Suspect]
     Active Substance: PROSCILLARIDIN
     Indication: CARDIAC DISORDER
     Dosage: UNK
  2. VERAPAMIL HYDROCHLORIDE SUSTAINED RELEASE [Suspect]
     Active Substance: VERAPAMIL HYDROCHLORIDE
     Indication: CARDIAC DISORDER
     Dosage: UNK

REACTIONS (3)
  - Off label use [Recovered/Resolved]
  - Right ventricular failure [Recovered/Resolved]
  - Drug interaction [Recovered/Resolved]
